FAERS Safety Report 5052443-3 (Version None)
Quarter: 2006Q3

REPORT INFORMATION
  Report Type: 
  Country: None (occurrence: None)
  Receive Date: 20060717
  Receipt Date: 20050907
  Transmission Date: 20061208
  Serious: No
  Sender: FDA-Public Use
  Company Number: US-BRISTOL-MYERS SQUIBB COMPANY-13103221

PATIENT
  Sex: Female

DRUGS (2)
  1. ESTRACE [Suspect]
     Indication: HYSTERECTOMY
  2. FEMRING [Concomitant]
     Route: 067

REACTIONS (2)
  - DYSPAREUNIA [None]
  - VAGINAL PAIN [None]
